FAERS Safety Report 13601772 (Version 1)
Quarter: 2017Q2

REPORT INFORMATION
  Report Type: Spontaneous
  Country: US (occurrence: US)
  Receive Date: 20170601
  Receipt Date: 20170601
  Transmission Date: 20170830
  Serious: No
  Sender: FDA-Public Use
  Company Number: US-BAUSCH-BL-2017-008605

PATIENT
  Age: 14 Year
  Sex: Female

DRUGS (2)
  1. ELIDEL [Suspect]
     Active Substance: PIMECROLIMUS
     Indication: PRODUCT USED FOR UNKNOWN INDICATION
     Route: 065
  2. TRIAMCINOLONE [Suspect]
     Active Substance: TRIAMCINOLONE
     Indication: PRODUCT USED FOR UNKNOWN INDICATION
     Route: 065

REACTIONS (2)
  - Pigmentation disorder [Unknown]
  - Drug ineffective [Unknown]
